FAERS Safety Report 9442015 (Version 1)
Quarter: 2013Q3

REPORT INFORMATION
  Report Type: Spontaneous
  Country: US (occurrence: US)
  Receive Date: 20130806
  Receipt Date: 20130806
  Transmission Date: 20140515
  Serious: Yes (Other)
  Sender: FDA-Public Use
  Company Number: US-ELI_LILLY_AND_COMPANY-US201307009884

PATIENT
  Sex: Female
  Weight: 122.45 kg

DRUGS (1)
  1. INSULIN HUMAN [Suspect]
     Dosage: UNK
     Route: 058

REACTIONS (3)
  - Upper limb fracture [Unknown]
  - Fall [Recovered/Resolved]
  - Wrong technique in drug usage process [Unknown]
